FAERS Safety Report 18285753 (Version 1)
Quarter: 2020Q3

REPORT INFORMATION
  Report Type: Report from Study
  Country: CA (occurrence: CA)
  Receive Date: 20200919
  Receipt Date: 20200919
  Transmission Date: 20201103
  Serious: Yes (Other)
  Sender: FDA-Public Use
  Company Number: CA-ACCORD-201927

PATIENT
  Age: 23 Year
  Sex: Female

DRUGS (6)
  1. ONDANSETRON [Concomitant]
     Active Substance: ONDANSETRON
     Indication: PRODUCT USED FOR UNKNOWN INDICATION
  2. TOPIRAMATE. [Suspect]
     Active Substance: TOPIRAMATE
     Indication: MIGRAINE
  3. BOTULINUM TOXIN TYPE A [Concomitant]
     Active Substance: BOTULINUM TOXIN TYPE A
     Indication: PRODUCT USED FOR UNKNOWN INDICATION
  4. TOPIRAMATE. [Suspect]
     Active Substance: TOPIRAMATE
     Indication: MIGRAINE
     Route: 048
  5. MIRENA [Concomitant]
     Active Substance: LEVONORGESTREL
     Indication: PRODUCT USED FOR UNKNOWN INDICATION
     Dosage: INSERT (EXTENDED? RELEASE)
  6. PROPRANOLOL [Suspect]
     Active Substance: PROPRANOLOL HYDROCHLORIDE
     Indication: MIGRAINE

REACTIONS (4)
  - Pain [Unknown]
  - Drug intolerance [Unknown]
  - Hypoaesthesia [Unknown]
  - Drug ineffective [Unknown]
